FAERS Safety Report 13255767 (Version 1)
Quarter: 2017Q1

REPORT INFORMATION
  Report Type: Spontaneous
  Country: US (occurrence: US)
  Receive Date: 20170217
  Receipt Date: 20170217
  Transmission Date: 20170428
  Serious: Yes (Other)
  Sender: FDA-Public Use
  Company Number: None

PATIENT
  Sex: Female

DRUGS (1)
  1. REMICADE [Suspect]
     Active Substance: INFLIXIMAB
     Indication: CROHN^S DISEASE
     Dosage: 100 MG Q 8 WEEKS IV INFUSION
     Route: 042
     Dates: start: 201412, end: 201612

REACTIONS (3)
  - Infusion related reaction [None]
  - No reaction on previous exposure to drug [None]
  - Hypersensitivity [None]
